FAERS Safety Report 23051631 (Version 1)
Quarter: 2023Q4

REPORT INFORMATION
  Report Type: Spontaneous
  Country: US (occurrence: US)
  Receive Date: 20231010
  Receipt Date: 20231010
  Transmission Date: 20240110
  Serious: No
  Sender: FDA-Public Use
  Company Number: US-Sprout Pharmaceuticals, Inc.-2022SP000346

PATIENT
  Age: 38 Year
  Sex: Female

DRUGS (3)
  1. ADDYI [Suspect]
     Active Substance: FLIBANSERIN
     Indication: Product used for unknown indication
     Route: 048
     Dates: start: 20221106
  2. PREDNISONE [Suspect]
     Active Substance: PREDNISONE
     Indication: Joint swelling
     Dosage: 3 WEEK COURSE
     Route: 065
  3. PREDNISONE [Suspect]
     Active Substance: PREDNISONE
     Indication: Arthralgia

REACTIONS (9)
  - Joint swelling [Unknown]
  - Arthralgia [Unknown]
  - Mood altered [Unknown]
  - Anger [Unknown]
  - Impatience [Unknown]
  - Frustration tolerance decreased [Unknown]
  - Tachyphrenia [Unknown]
  - Sleep disorder [Unknown]
  - Middle insomnia [Unknown]

NARRATIVE: CASE EVENT DATE: 20221101
